FAERS Safety Report 9779949 (Version 1)
Quarter: 2013Q4

REPORT INFORMATION
  Report Type: Spontaneous
  Country: CA (occurrence: CA)
  Receive Date: 20131223
  Receipt Date: 20131223
  Transmission Date: 20140711
  Serious: Yes (Death)
  Sender: FDA-Public Use
  Company Number: CA-B.I. PHARMACEUTICALS,INC./RIDGEFIELD-2013-BI-43421CN

PATIENT
  Age: 91 Year
  Sex: Female
  Weight: 52 kg

DRUGS (2)
  1. PRADAXA [Suspect]
     Dosage: 75 MG
     Route: 048
  2. ANTI-HYPERTENSIVE MEDICATION [Concomitant]

REACTIONS (1)
  - Subdural haemorrhage [Fatal]
